FAERS Safety Report 10538203 (Version 1)
Quarter: 2014Q4

REPORT INFORMATION
  Report Type: Spontaneous
  Country: US (occurrence: US)
  Receive Date: 20141023
  Receipt Date: 20141023
  Transmission Date: 20150529
  Serious: Yes (Hospitalization, Other)
  Sender: FDA-Public Use
  Company Number: US-ACTAVIS-2014-22365

PATIENT
  Age: 61 Year
  Sex: Male

DRUGS (3)
  1. WARFARIN (UNKNOWN) [Suspect]
     Active Substance: WARFARIN
     Indication: DRUG DISPENSING ERROR
     Dosage: 195 MG, TOTAL, 5 MG, BID FOR 19.5 DAYS
     Route: 048
  2. RANITIDINE [Suspect]
     Active Substance: RANITIDINE\RANITIDINE HYDROCHLORIDE
     Indication: DRUG DISPENSING ERROR
     Dosage: UNK
     Route: 065
  3. RANITIDINE [Suspect]
     Active Substance: RANITIDINE\RANITIDINE HYDROCHLORIDE
     Dosage: 150 MG, BID
     Route: 048

REACTIONS (5)
  - Haematuria [Recovered/Resolved]
  - Lower gastrointestinal haemorrhage [Recovered/Resolved]
  - Accidental overdose [Recovered/Resolved]
  - Drug dispensing error [Recovered/Resolved]
  - Epistaxis [Recovered/Resolved]
